FAERS Safety Report 18690744 (Version 1)
Quarter: 2021Q1

REPORT INFORMATION
  Report Type: Spontaneous
  Country: CN (occurrence: CN)
  Receive Date: 20210101
  Receipt Date: 20210101
  Transmission Date: 20210419
  Serious: Yes (Life-Threatening)
  Sender: FDA-Public Use
  Company Number: CN-ROCHE-2741682

PATIENT
  Age: 61 Year
  Sex: Female
  Weight: 50 kg

DRUGS (2)
  1. OXALIPLATIN. [Concomitant]
     Active Substance: OXALIPLATIN
     Indication: COLON CANCER
     Dosage: DAY1
     Route: 041
     Dates: start: 20200826
  2. XELODA [Suspect]
     Active Substance: CAPECITABINE
     Indication: COLON CANCER
     Route: 048
     Dates: start: 20200826, end: 20200827

REACTIONS (2)
  - Hypersensitivity [Recovered/Resolved]
  - Oropharyngeal discomfort [Recovered/Resolved]

NARRATIVE: CASE EVENT DATE: 20200827
